FAERS Safety Report 5996580-5 (Version None)
Quarter: 2008Q4

REPORT INFORMATION
  Report Type: 
  Country: None (occurrence: None)
  Receive Date: 20081212
  Receipt Date: 20081110
  Transmission Date: 20090506
  Serious: No
  Sender: FDA-Public Use
  Company Number: US-ABBOTT-08P-163-0482929-00

PATIENT
  Sex: Female
  Weight: 72.64 kg

DRUGS (3)
  1. HUMIRA [Suspect]
     Indication: CROHN'S DISEASE
     Route: 058
     Dates: start: 20080922
  2. HUMIRA [Suspect]
  3. VALPROATE SODIUM [Concomitant]
     Indication: BIPOLAR DISORDER
     Route: 048
     Dates: start: 19970101

REACTIONS (3)
  - NASOPHARYNGITIS [None]
  - PRURITUS [None]
  - RASH [None]
